FAERS Safety Report 6383523-8 (Version None)
Quarter: 2009Q3

REPORT INFORMATION
  Report Type: 
  Country: None (occurrence: None)
  Receive Date: 20090928
  Receipt Date: 20090918
  Transmission Date: 20100115
  Serious: Yes (Hospitalization)
  Sender: FDA-Public Use
  Company Number: ADR28452009

PATIENT
  Age: 39 Year
  Sex: Male

DRUGS (4)
  1. RISPERIDONE [Suspect]
     Indication: OBSESSIVE-COMPULSIVE DISORDER
     Dosage: ORAL
     Route: 048
     Dates: start: 20090604, end: 20090615
  2. CIPRAMIL [Concomitant]
  3. OLANZAPINE [Concomitant]
  4. PROMAZINE HYDROCHLORIDE [Concomitant]

REACTIONS (2)
  - LEUKOCYTOSIS [None]
  - NEUROLEPTIC MALIGNANT SYNDROME [None]
